FAERS Safety Report 6636781-6 (Version None)
Quarter: 2010Q1

REPORT INFORMATION
  Report Type: 
  Country: None (occurrence: None)
  Receive Date: 20100316
  Receipt Date: 20100311
  Transmission Date: 20100710
  Serious: Yes (Other)
  Sender: FDA-Public Use
  Company Number: CH-WYE-G05740710

PATIENT
  Age: 59 Year
  Sex: Female

DRUGS (1)
  1. TORISEL [Suspect]
     Indication: RENAL CELL CARCINOMA
     Dosage: DOSE AND FREQUENCY UNKNOWN
     Dates: start: 20080601, end: 20081201

REACTIONS (1)
  - DISEASE PROGRESSION [None]
